FAERS Safety Report 11929387 (Version 1)
Quarter: 2016Q1

REPORT INFORMATION
  Report Type: Spontaneous
  Country: US (occurrence: None)
  Receive Date: 20160119
  Receipt Date: 20160119
  Transmission Date: 20160526
  Serious: No
  Sender: FDA-Public Use
  Company Number: None

PATIENT
  Age: 62 Year
  Sex: Female
  Weight: 77.11 kg

DRUGS (5)
  1. PANTOPRAZOLE SODIUM. [Concomitant]
     Active Substance: PANTOPRAZOLE SODIUM
  2. 2000-D-3 [Concomitant]
  3. NITROFURANTION 100 NORTH STAR [Suspect]
     Active Substance: NITROFURANTOIN
     Indication: BLADDER DISORDER
     Dosage: 2 PILLS DAILY
     Route: 048
     Dates: start: 20160110, end: 20160113
  4. CYMBALTA [Concomitant]
     Active Substance: DULOXETINE HYDROCHLORIDE
  5. ENBREL [Concomitant]
     Active Substance: ETANERCEPT

REACTIONS (2)
  - Emotional distress [None]
  - Ill-defined disorder [None]

NARRATIVE: CASE EVENT DATE: 20160109
